FAERS Safety Report 10421894 (Version 1)
Quarter: 2014Q3

REPORT INFORMATION
  Report Type: Spontaneous
  Country: IN (occurrence: IN)
  Receive Date: 20140901
  Receipt Date: 20140901
  Transmission Date: 20150326
  Serious: Yes (Other)
  Sender: FDA-Public Use
  Company Number: IN-AUROBINDO-AUR-APL-2014-09287

PATIENT
  Age: 23 Year
  Sex: Female

DRUGS (2)
  1. SERTRALINE HYDROCHLORIDE TABLETS 25 MG [Suspect]
     Active Substance: SERTRALINE HYDROCHLORIDE
     Indication: DEPRESSION
     Dosage: 25 MG, DAILY
     Route: 065
  2. SERTRALINE HYDROCHLORIDE TABLETS 25 MG [Suspect]
     Active Substance: SERTRALINE HYDROCHLORIDE
     Dosage: 150 MG, DAILY
     Route: 065

REACTIONS (5)
  - Myoclonic epilepsy [Recovered/Resolved]
  - Convulsion [Recovered/Resolved]
  - Condition aggravated [Recovered/Resolved]
  - Dyskinesia [Recovered/Resolved]
  - Generalised tonic-clonic seizure [Recovered/Resolved]
